FAERS Safety Report 13704942 (Version 9)
Quarter: 2018Q2

REPORT INFORMATION
  Report Type: Report from Study
  Country: DE (occurrence: DE)
  Receive Date: 20170630
  Receipt Date: 20180605
  Transmission Date: 20180711
  Serious: Yes (Hospitalization)
  Sender: FDA-Public Use
  Company Number: DE-ROCHE-1955622

PATIENT
  Age: 53 Year
  Sex: Male
  Weight: 78 kg

DRUGS (7)
  1. BLINDED ATEZOLIZUMAB [Suspect]
     Active Substance: ATEZOLIZUMAB
     Indication: MALIGNANT MELANOMA
     Dosage: DATE OF MOST RECENT DOSE OF BLINDED ATEZOLIZUMAB 09/AUG/2017?DATE OF MOST RECENT DOSE OF BLINDED ATE
     Route: 042
     Dates: start: 20170712
  2. VEMURAFENIB. [Suspect]
     Active Substance: VEMURAFENIB
     Indication: MALIGNANT MELANOMA
     Dosage: ON 23/JUN/2017, 4 TABLETS OF LAST VEMURAFENIB ADMINISTERED PRIOR TO AE ONSET?MOST RECENT DOSE PRIOR
     Route: 048
     Dates: start: 20170607
  3. PANTOPRAZOL [Concomitant]
     Active Substance: PANTOPRAZOLE SODIUM
     Route: 048
     Dates: start: 20170929
  4. PARACETAMOL [Concomitant]
     Active Substance: ACETAMINOPHEN
     Indication: PYREXIA
     Route: 048
     Dates: start: 20170923
  5. COBIMETINIB. [Suspect]
     Active Substance: COBIMETINIB
     Indication: MALIGNANT MELANOMA
     Dosage: 60 MG (THREE, 20 MG TABLETS)?MOST RECENT DOSE (3 MG) PRIOR TO EVENT: 23/JUN/2017?MOST RECENT DOSE PR
     Route: 048
     Dates: start: 20170607
  6. PARACETAMOL [Concomitant]
     Active Substance: ACETAMINOPHEN
     Indication: INFECTION
     Route: 048
     Dates: start: 20170623, end: 20170630
  7. ADVANTAN [Concomitant]
     Active Substance: METHYLPREDNISOLONE ACEPONATE
     Dosage: DOSE: 1 UNIT
     Route: 061
     Dates: start: 20170618

REACTIONS (4)
  - Body temperature increased [Recovered/Resolved]
  - Hyperthyroidism [Recovering/Resolving]
  - Infection [Recovered/Resolved]
  - Blood creatine phosphokinase increased [Recovered/Resolved]

NARRATIVE: CASE EVENT DATE: 20170623
